FAERS Safety Report 7693185-5 (Version None)
Quarter: 2011Q3

REPORT INFORMATION
  Report Type: 
  Country: None (occurrence: None)
  Receive Date: 20110819
  Receipt Date: 20091031
  Transmission Date: 20111222
  Serious: Yes (Hospitalization, Other)
  Sender: FDA-Public Use
  Company Number: US-BAYER-200937687NA

PATIENT
  Age: 64 Year
  Sex: Female
  Weight: 45.351 kg

DRUGS (34)
  1. CIPROFLOXACIN [Concomitant]
     Dosage: UNK
     Dates: start: 20070209
  2. VANCOMYCIN [Concomitant]
     Dosage: UNK
     Dates: start: 20070205
  3. FUROSEMIDE [Concomitant]
     Dosage: UNK
     Dates: start: 20010101
  4. FRESH FROZEN PLASMA [Concomitant]
     Dosage: 8 U, UNK
     Dates: start: 20070124
  5. PLATELETS [Concomitant]
     Dosage: 2 U, UNK
     Dates: start: 20070124
  6. HEPARIN [Concomitant]
     Dosage: 32000 U, UNK
     Route: 042
     Dates: start: 20070124, end: 20070124
  7. INOSITOL [Concomitant]
     Dosage: 3.02/275 MG
     Route: 048
  8. PAVULON [Concomitant]
     Dosage: UNK
     Route: 042
     Dates: start: 20070124, end: 20070124
  9. VANCOMYCIN [Concomitant]
     Dosage: UNK
     Dates: start: 20070524
  10. ALDACTONE [Concomitant]
     Dosage: UNK
     Dates: start: 20030101
  11. ACETYLSALICYLIC ACID SRT [Concomitant]
     Dosage: 81 MG, QD
     Route: 048
  12. DOPAMINE HCL [Concomitant]
     Dosage: UNK
     Route: 042
     Dates: start: 20070124
  13. CRESTOR [Concomitant]
     Dosage: 5 MG, QD
     Route: 048
  14. SPIRONOLACTONE [Concomitant]
     Dosage: UNK
     Dates: start: 20010101
  15. TRASYLOL [Suspect]
     Indication: AORTIC ANASTOMOSIS
     Dosage: 200 ML, ONCE LOADING DOSE
     Dates: start: 20070124, end: 20070124
  16. MAGNESIUM SULFATE [Concomitant]
     Dosage: 4 G, UNK
     Route: 042
     Dates: start: 20070124, end: 20070124
  17. VERSED [Concomitant]
     Dosage: UNK
     Route: 042
     Dates: start: 20070124, end: 20070124
  18. CANCIDAS [Concomitant]
     Dosage: UNK
     Dates: start: 20070209
  19. TRASYLOL [Suspect]
     Indication: AORTIC VALVE REPLACEMENT
     Dosage: 1 ML, ONCE INITIAL DOSE
     Route: 042
     Dates: start: 20070124, end: 20070124
  20. FACTOR VII [Concomitant]
     Dosage: UNK
     Dates: start: 20070124
  21. SURFAK [Concomitant]
     Dosage: 1 G, QD
     Route: 048
  22. INSULIN [Concomitant]
     Dosage: UNK
     Route: 042
     Dates: start: 20070124
  23. CIPROFLOXACIN [Concomitant]
     Indication: PNEUMONIA
     Dosage: UNK
     Dates: start: 20070130
  24. TRASYLOL [Suspect]
     Indication: CORONARY ARTERY BYPASS
     Dosage: 200 ML, ONCE PUMP PRIME
     Dates: start: 20070124, end: 20070124
  25. RED BLOOD CELLS [Concomitant]
     Dosage: 2 U, UNK
     Dates: start: 20070124
  26. OMNIPAQUE 140 [Concomitant]
     Indication: CATHETERISATION CARDIAC
     Dosage: 150 ML, UNK
     Dates: start: 20061109
  27. ATENOLOL [Concomitant]
     Dosage: 25 MG, QD
     Route: 048
  28. PROTAMINE [Concomitant]
     Dosage: UNK
     Route: 042
     Dates: start: 20070124, end: 20070124
  29. KEFZOL [Concomitant]
     Dosage: UNK
     Route: 042
     Dates: start: 20070124
  30. CALCIUM CHLORIDE [Concomitant]
     Dosage: UNK
     Route: 042
     Dates: start: 20070124, end: 20070124
  31. MORPHINE [Concomitant]
     Dosage: UNK
     Route: 042
     Dates: start: 20070124, end: 20070124
  32. AZACTAM [Concomitant]
     Dosage: UNK
     Dates: start: 20070201
  33. TRASYLOL [Suspect]
     Dosage: 50 ML, Q1HR
     Dates: start: 20070124, end: 20070124
  34. FENTANYL [Concomitant]
     Dosage: UNK
     Route: 042
     Dates: start: 20070124, end: 20070124

REACTIONS (5)
  - UNEVALUABLE EVENT [None]
  - INJURY [None]
  - PAIN [None]
  - RENAL FAILURE [None]
  - PSYCHIATRIC SYMPTOM [None]
